FAERS Safety Report 13984018 (Version 1)
Quarter: 2017Q3

REPORT INFORMATION
  Report Type: Spontaneous
  Country: JP (occurrence: JP)
  Receive Date: 20170918
  Receipt Date: 20170918
  Transmission Date: 20171128
  Serious: Yes (Other)
  Sender: FDA-Public Use
  Company Number: JP-PFIZER INC-2017337064

PATIENT
  Age: 59 Year
  Sex: Female
  Weight: 52.2 kg

DRUGS (6)
  1. AMIKACIN SULFATE. [Concomitant]
     Active Substance: AMIKACIN SULFATE
     Indication: INFECTION PROPHYLAXIS
     Dosage: 200 MG, 1X/DAY
     Route: 041
     Dates: start: 20170607, end: 20170607
  2. PRECEDEX [Suspect]
     Active Substance: DEXMEDETOMIDINE HYDROCHLORIDE
     Indication: SEDATION
     Dosage: 240 MCG/HR
     Route: 041
     Dates: start: 20170607, end: 20170607
  3. MARCAIN /00330102/ [Concomitant]
     Indication: ANALGESIC THERAPY
     Dosage: 2 ML, 1X/DAY
     Route: 008
     Dates: start: 20170607, end: 20170607
  4. XYLOCAINE [Concomitant]
     Active Substance: LIDOCAINE HYDROCHLORIDE
     Indication: ANALGESIC THERAPY
     Dosage: 2 ML, 1X/DAY
     Route: 058
     Dates: start: 20170607, end: 20170607
  5. PRECEDEX [Suspect]
     Active Substance: DEXMEDETOMIDINE HYDROCHLORIDE
     Dosage: 20 MCG/HR
     Route: 041
     Dates: start: 20170607, end: 20170607
  6. XYLOCAINE WITH EPINEPHRINE [Concomitant]
     Active Substance: EPINEPHRINE BITARTRATE\LIDOCAINE HYDROCHLORIDE
     Indication: ANALGESIC THERAPY
     Dosage: 10 TO 12 ML (5 IN 1 DAY)
     Route: 058
     Dates: start: 20170607, end: 20170607

REACTIONS (2)
  - Bradycardia [Recovered/Resolved]
  - Loss of consciousness [Recovered/Resolved]

NARRATIVE: CASE EVENT DATE: 20170607
